FAERS Safety Report 8490678-8 (Version None)
Quarter: 2012Q3

REPORT INFORMATION
  Report Type: 
  Country: None (occurrence: None)
  Receive Date: 20120705
  Receipt Date: 20120628
  Transmission Date: 20120928
  Serious: Yes (Hospitalization)
  Sender: FDA-Public Use
  Company Number: US-CELGENEUS-163-21880-12061692

PATIENT
  Sex: Female

DRUGS (5)
  1. ZOMETA [Concomitant]
     Route: 065
  2. VELCADE [Concomitant]
     Route: 065
  3. DEXAMETHASONE SODIUM PHOSPHATE [Concomitant]
     Route: 065
  4. REVLIMID [Suspect]
     Indication: MULTIPLE MYELOMA
     Dosage: 25 MILLIGRAM
     Route: 048
     Dates: start: 20120430, end: 20120606
  5. SYNTHROID [Concomitant]
     Route: 065

REACTIONS (9)
  - TOXICITY TO VARIOUS AGENTS [None]
  - NEUROPATHY PERIPHERAL [None]
  - ATRIAL FIBRILLATION [None]
  - PYREXIA [None]
  - CONSTIPATION [None]
  - ASTHENIA [None]
  - ABDOMINAL PAIN [None]
  - TREMOR [None]
  - URINARY TRACT INFECTION [None]
